FAERS Safety Report 8924307 (Version 1)
Quarter: 2012Q4

REPORT INFORMATION
  Report Type: 
  Country: RO (occurrence: RO)
  Receive Date: 20121126
  Receipt Date: 20121126
  Transmission Date: 20130627
  Serious: Yes (Life-Threatening, Hospitalization)
  Sender: FDA-Public Use
  Company Number: RO-GLAXOSMITHKLINE-B0844921A

PATIENT
  Age: 67 Year
  Sex: Male

DRUGS (1)
  1. SALBUTAMOL [Suspect]
     Indication: ASTHMA
     Route: 055

REACTIONS (10)
  - Paradoxical drug reaction [Recovered/Resolved]
  - Bronchospasm [Unknown]
  - Wheezing [Unknown]
  - Anxiety [Unknown]
  - Dyspnoea [Unknown]
  - Cough [Unknown]
  - Ill-defined disorder [Unknown]
  - Prolonged expiration [Unknown]
  - Consciousness fluctuating [Unknown]
  - Asterixis [Unknown]
